FAERS Safety Report 4846720-6 (Version None)
Quarter: 2005Q4

REPORT INFORMATION
  Report Type: 
  Country: None (occurrence: None)
  Receive Date: 20051206
  Receipt Date: 20051005
  Transmission Date: 20060501
  Serious: Yes (Hospitalization)
  Sender: FDA-Public Use
  Company Number: US-MERCK-0510USA04604

PATIENT
  Age: 32 Year
  Sex: Male
  Weight: 86 kg

DRUGS (4)
  1. VIOXX [Suspect]
     Indication: BACK PAIN
     Route: 048
     Dates: start: 20021101, end: 20041001
  2. SOMA [Concomitant]
     Route: 065
  3. VICODIN [Concomitant]
     Route: 065
  4. PAXIL CR [Concomitant]
     Route: 065

REACTIONS (4)
  - DEPRESSION [None]
  - SPINAL DISORDER [None]
  - THROMBOSIS [None]
  - VERTEBRAL INJURY [None]
